FAERS Safety Report 14817765 (Version 1)
Quarter: 2018Q2

REPORT INFORMATION
  Report Type: Spontaneous
  Country: CA (occurrence: CA)
  Receive Date: 20180427
  Receipt Date: 20180427
  Transmission Date: 20180711
  Serious: Yes (Other)
  Sender: FDA-Public Use
  Company Number: CA-TEVA-2018-CA-884345

PATIENT
  Age: 79 Year
  Sex: Male
  Weight: 90 kg

DRUGS (5)
  1. FENTANYL. [Concomitant]
     Active Substance: FENTANYL
     Route: 065
  2. NAPROXEN. [Suspect]
     Active Substance: NAPROXEN
     Indication: PROCEDURAL PAIN
     Route: 048
  3. DILAUDID [Concomitant]
     Active Substance: HYDROMORPHONE HYDROCHLORIDE
  4. NAPROXEN. [Suspect]
     Active Substance: NAPROXEN
     Indication: PLEURITIC PAIN
  5. AMIODARONE [Concomitant]
     Active Substance: AMIODARONE

REACTIONS (2)
  - Pruritus [Recovered/Resolved]
  - Rash macular [Recovered/Resolved]
